FAERS Safety Report 7979087-5 (Version None)
Quarter: 2011Q4

REPORT INFORMATION
  Report Type: 
  Country: None (occurrence: None)
  Receive Date: 20111205
  Receipt Date: 20111121
  Transmission Date: 20120403
  Serious: Yes (Death, Life-Threatening, Hospitalization, Other)
  Sender: FDA-Public Use
  Company Number: 2011MA016698

PATIENT
  Sex: Female
  Weight: 72.5755 kg

DRUGS (18)
  1. DIGOXIN [Suspect]
     Indication: CARDIAC DISORDER
     Dosage: 0.125 MG;QD;PO
     Route: 048
     Dates: start: 20060803, end: 20070712
  2. SIMVASTATIN [Concomitant]
  3. AMIODARONE HCL [Concomitant]
  4. ASPIRIN [Concomitant]
  5. ENALAPRIL MALEATE [Concomitant]
  6. PROTONIX [Concomitant]
  7. NITROGLYCERIN [Concomitant]
  8. CARDIZEM [Concomitant]
  9. AMARYL [Concomitant]
  10. SPIRONOLACTONE [Concomitant]
  11. EPINEPHRINE [Concomitant]
  12. ANTIBIOTIC THERAPY [Concomitant]
  13. CODMADIN [Concomitant]
  14. LASIX [Concomitant]
  15. DOPAMINE HCL [Concomitant]
  16. PLAVIX [Concomitant]
  17. PRESSOR SUPPORT [Concomitant]
  18. COREG [Concomitant]

REACTIONS (23)
  - PALPITATIONS [None]
  - RENAL FAILURE [None]
  - HYPERKALAEMIA [None]
  - CARDIOACTIVE DRUG LEVEL INCREASED [None]
  - VISUAL IMPAIRMENT [None]
  - DECREASED APPETITE [None]
  - DYSPNOEA [None]
  - ASTHENIA [None]
  - FAMILY STRESS [None]
  - DIZZINESS [None]
  - SOMNOLENCE [None]
  - CARDIAC ARREST [None]
  - MULTIPLE INJURIES [None]
  - FATIGUE [None]
  - FALL [None]
  - DIARRHOEA [None]
  - SUDDEN DEATH [None]
  - ISCHAEMIC CARDIOMYOPATHY [None]
  - WHITE BLOOD CELL COUNT INCREASED [None]
  - ECONOMIC PROBLEM [None]
  - VENTRICULAR FIBRILLATION [None]
  - CORONARY ARTERY DISEASE [None]
  - TRICUSPID VALVE INCOMPETENCE [None]
